FAERS Safety Report 5907466-6 (Version None)
Quarter: 2008Q4

REPORT INFORMATION
  Report Type: 
  Country: None (occurrence: None)
  Receive Date: 20081003
  Receipt Date: 20080925
  Transmission Date: 20090506
  Serious: Yes (Hospitalization)
  Sender: FDA-Public Use
  Company Number: B0538752A

PATIENT
  Age: 84 Year
  Sex: Female

DRUGS (4)
  1. ARIXTRA [Suspect]
     Dosage: 2.5MG PER DAY
     Route: 058
     Dates: start: 20080403, end: 20080429
  2. CARDENSIEL [Concomitant]
     Dosage: 5MG PER DAY
     Route: 065
  3. MEMANTINE HCL [Concomitant]
     Dosage: 10MG TWICE PER DAY
     Route: 065
  4. FORLAX [Concomitant]
     Route: 065

REACTIONS (6)
  - ABDOMINAL PAIN [None]
  - ANAEMIA [None]
  - HAEMATOMA [None]
  - POST PROCEDURAL HAEMORRHAGE [None]
  - RENAL FAILURE [None]
  - SWELLING [None]
